FAERS Safety Report 5142150-0 (Version None)
Quarter: 2006Q4

REPORT INFORMATION
  Report Type: 
  Country: None (occurrence: None)
  Receive Date: 20061102
  Receipt Date: 20060918
  Transmission Date: 20070319
  Serious: Yes (Other)
  Sender: FDA-Public Use
  Company Number: GBWYE962819SEP06

PATIENT
  Sex: Female

DRUGS (3)
  1. ENBREL [Suspect]
     Indication: RHEUMATOID ARTHRITIS
     Route: 058
     Dates: start: 20060824
  2. ENBREL [Suspect]
     Route: 058
     Dates: start: 20060101, end: 20060922
  3. CHLORPHENIRAMINE MALEATE [Concomitant]
     Dosage: UNKNOWN

REACTIONS (10)
  - HOT FLUSH [None]
  - INFLAMMATION [None]
  - INJECTION SITE ERYTHEMA [None]
  - NASAL OEDEMA [None]
  - NAUSEA [None]
  - PALPITATIONS [None]
  - SENSORY LOSS [None]
  - SKIN TIGHTNESS [None]
  - SWELLING FACE [None]
  - VASCULITIS [None]
